FAERS Safety Report 20223429 (Version 1)
Quarter: 2021Q4

REPORT INFORMATION
  Report Type: Spontaneous
  Country: None (occurrence: US)
  Receive Date: 20211223
  Receipt Date: 20211223
  Transmission Date: 20220303
  Serious: Yes (Other)
  Sender: FDA-Public Use
  Company Number: US-Breckenridge Pharmaceutical, Inc.-2123327

PATIENT
  Age: 69 Year
  Sex: Female
  Weight: 63.636 kg

DRUGS (6)
  1. DULOXETINE [Suspect]
     Active Substance: DULOXETINE
     Indication: Neuropathy peripheral
     Route: 048
  2. OZEMPIC [Suspect]
     Active Substance: SEMAGLUTIDE
  3. MELOXICAM [Concomitant]
     Active Substance: MELOXICAM
  4. CRESTOR [Concomitant]
     Active Substance: ROSUVASTATIN CALCIUM
  5. METFORMIN [Concomitant]
     Active Substance: METFORMIN HYDROCHLORIDE
  6. SOTALOL [Concomitant]
     Active Substance: SOTALOL
     Route: 065

REACTIONS (1)
  - Urticaria [Unknown]
